FAERS Safety Report 15820429 (Version 1)
Quarter: 2019Q1

REPORT INFORMATION
  Report Type: Spontaneous
  Country: US (occurrence: US)
  Receive Date: 20190111
  Receipt Date: 20190111
  Transmission Date: 20190417
  Serious: Yes (Other)
  Sender: FDA-Public Use
  Company Number: None

PATIENT
  Age: 66 Year
  Sex: Female
  Weight: 85.5 kg

DRUGS (4)
  1. GABAPENTIN 300MG SG 180 YELLOW CAPSUL [Suspect]
     Active Substance: GABAPENTIN
     Indication: FIBROMYALGIA
     Dosage: ?          QUANTITY:90 CAPSULE(S);?
     Route: 048
     Dates: start: 20181206, end: 20190109
  2. METHYL FOLATE [Concomitant]
  3. CANNABIS [Concomitant]
     Active Substance: CANNABIS SATIVA SUBSP. INDICA TOP
  4. D [Concomitant]

REACTIONS (3)
  - Abdominal pain [None]
  - Abdominal discomfort [None]
  - Diverticulitis [None]

NARRATIVE: CASE EVENT DATE: 20181206
